FAERS Safety Report 16479231 (Version 1)
Quarter: 2019Q2

REPORT INFORMATION
  Report Type: Spontaneous
  Country: US (occurrence: US)
  Receive Date: 20190626
  Receipt Date: 20190626
  Transmission Date: 20190711
  Serious: Yes (Other)
  Sender: FDA-Public Use
  Company Number: US-SAOL THERAPEUTICS-2018SAO01057

PATIENT
  Age: 17 Year
  Sex: Female

DRUGS (3)
  1. LIORESAL [Suspect]
     Active Substance: BACLOFEN
     Dosage: UNK ?G, \DAY
     Route: 037
  2. LIORESAL [Suspect]
     Active Substance: BACLOFEN
     Dosage: UNK ?G, \DAY
     Dates: start: 20181229
  3. LIORESAL [Suspect]
     Active Substance: BACLOFEN
     Dosage: 96 ?G, \DAY
     Dates: start: 2018, end: 20181229

REACTIONS (4)
  - Therapy non-responder [Not Recovered/Not Resolved]
  - Respiratory depression [Recovered/Resolved]
  - Sedation complication [Recovered/Resolved]
  - Device dislocation [Recovered/Resolved]

NARRATIVE: CASE EVENT DATE: 2018
